FAERS Safety Report 7641871-5 (Version None)
Quarter: 2011Q3

REPORT INFORMATION
  Report Type: 
  Country: None (occurrence: None)
  Receive Date: 20110728
  Receipt Date: 20110720
  Transmission Date: 20111222
  Serious: No
  Sender: FDA-Public Use
  Company Number: ZA-ROCHE-791689

PATIENT
  Sex: Female

DRUGS (2)
  1. ISOTRETINOIN [Suspect]
     Route: 065
     Dates: start: 20110601
  2. ISOTRETINOIN [Suspect]
     Route: 065
     Dates: end: 20110501

REACTIONS (2)
  - PREGNANCY [None]
  - NO ADVERSE EVENT [None]
